FAERS Safety Report 9431122 (Version 1)
Quarter: 2013Q3

REPORT INFORMATION
  Report Type: Report from Study
  Country: IE (occurrence: IE)
  Receive Date: 20130730
  Receipt Date: 20130730
  Transmission Date: 20140515
  Serious: Yes (Hospitalization)
  Sender: FDA-Public Use
  Company Number: PHHO2005IE03893

PATIENT
  Age: 39 Year
  Sex: Female
  Weight: 66.5 kg

DRUGS (7)
  1. ZOLEDRONATE [Suspect]
     Indication: METASTASES TO BONE
     Dosage: 4 MG, UNK
     Route: 042
     Dates: start: 20041130
  2. ZOLEDRONATE [Suspect]
     Dosage: 4 MG TIW
     Route: 042
     Dates: start: 20050301
  3. 5-FLUOROURACIL [Suspect]
     Indication: BREAST CANCER
     Dosage: 1020 MG, EVERY 21 DAYS
     Dates: start: 20050201
  4. METHOTREXATE [Suspect]
     Indication: BREAST CANCER
     Dosage: 68 MG, EVERY 21 DAYS
     Dates: start: 20050201
  5. CYCLOPHOSPHAMIDE [Suspect]
     Indication: BREAST CANCER
     Dosage: 1020 MG, EVERY 21 DAYS
     Route: 042
     Dates: start: 20050201
  6. VITAMIN D [Concomitant]
  7. CALCIUM [Concomitant]

REACTIONS (2)
  - Deep vein thrombosis [Recovered/Resolved with Sequelae]
  - Pain in extremity [Recovered/Resolved with Sequelae]
